FAERS Safety Report 24426177 (Version 2)
Quarter: 2024Q4

REPORT INFORMATION
  Report Type: Spontaneous
  Country: US (occurrence: US)
  Receive Date: 20241011
  Receipt Date: 20241011
  Transmission Date: 20250115
  Serious: Yes (Hospitalization)
  Sender: ROCHE
  Company Number: US-ROCHE-10000102091

PATIENT
  Age: 76 Year
  Sex: Female
  Weight: 42.63 kg

DRUGS (9)
  1. VABYSMO [Suspect]
     Active Substance: FARICIMAB-SVOA
     Indication: Neovascular age-related macular degeneration
     Route: 050
     Dates: end: 20230817
  2. VABYSMO [Suspect]
     Active Substance: FARICIMAB-SVOA
     Route: 050
     Dates: start: 20240926, end: 20240926
  3. LOSARTAN [Concomitant]
     Active Substance: LOSARTAN
     Indication: Myocardial infarction
     Route: 048
     Dates: start: 202401
  4. METOPROLOL [Concomitant]
     Active Substance: METOPROLOL
     Indication: Myocardial infarction
     Route: 048
     Dates: start: 202401
  5. BRILINTA [Concomitant]
     Active Substance: TICAGRELOR
     Indication: Myocardial infarction
     Dosage: 90 MG TWICE DAILY
     Route: 048
     Dates: start: 202401, end: 20241005
  6. CRESTOR [Concomitant]
     Active Substance: ROSUVASTATIN CALCIUM
     Indication: Myocardial infarction
     Route: 048
     Dates: start: 202401
  7. ASPIRIN [Concomitant]
     Active Substance: ASPIRIN
     Indication: Myocardial infarction
     Dosage: 81 MG TWICE DAILY
     Route: 048
     Dates: start: 202401, end: 20241005
  8. ATIVAN [Concomitant]
     Active Substance: LORAZEPAM
     Indication: Myocardial infarction
     Dosage: 0.5 MG TWICE DAILY AS NEEDED
     Route: 048
     Dates: start: 202401
  9. EYLEA [Concomitant]
     Active Substance: AFLIBERCEPT

REACTIONS (3)
  - Myocardial infarction [Recovering/Resolving]
  - Pulmonary thrombosis [Recovering/Resolving]
  - Heart rate increased [Unknown]

NARRATIVE: CASE EVENT DATE: 20241005
